FAERS Safety Report 11986648 (Version 1)
Quarter: 2016Q1

REPORT INFORMATION
  Report Type: Spontaneous
  Country: CA (occurrence: None)
  Receive Date: 20160201
  Receipt Date: 20160201
  Transmission Date: 20160526
  Serious: Yes (Other)
  Sender: FDA-Public Use
  Company Number: None

PATIENT
  Age: 69 Year
  Sex: Female
  Weight: 68.95 kg

DRUGS (11)
  1. AVAMYS ALLERGY SPRAY [Concomitant]
  2. VERAPAMIL [Concomitant]
     Active Substance: VERAPAMIL HYDROCHLORIDE
  3. TUZEN PROBIOTIC [Concomitant]
  4. VITALUX [Concomitant]
     Active Substance: MINERALS\VITAMINS
  5. CALCIUM/MAGNESIUM PLUS ZINC [Concomitant]
  6. MINT OIL [Concomitant]
  7. CETIRIZINE [Concomitant]
     Active Substance: CETIRIZINE HYDROCHLORIDE
  8. VICKS NYQUIL [Concomitant]
     Active Substance: ACETAMINOPHEN\DEXTROMETHORPHAN HYDROBROMIDE\DOXYLAMINE SUCCINATE
  9. XARELTO [Suspect]
     Active Substance: RIVAROXABAN
     Indication: ATRIAL FIBRILLATION
     Dosage: 1 PILL DAILY WITH MEAL ONCE DAILY TAKEN BY MOUTH
     Route: 048
     Dates: start: 20160108, end: 20160130
  10. PROPAFENONE. [Concomitant]
     Active Substance: PROPAFENONE
  11. VITAMIN B12 [Concomitant]
     Active Substance: CYANOCOBALAMIN

REACTIONS (4)
  - Insomnia [None]
  - Cough [None]
  - Pruritus generalised [None]
  - Nasopharyngitis [None]

NARRATIVE: CASE EVENT DATE: 20160108
